FAERS Safety Report 19240344 (Version 1)
Quarter: 2021Q2

REPORT INFORMATION
  Report Type: Spontaneous
  Country: DE (occurrence: DE)
  Receive Date: 20210511
  Receipt Date: 20210511
  Transmission Date: 20210717
  Serious: Yes (Hospitalization)
  Sender: FDA-Public Use
  Company Number: DE-TORRENT-00020238

PATIENT
  Age: 62 Year
  Sex: Female
  Weight: 65 kg

DRUGS (7)
  1. PRAMIPEXOLE. [Suspect]
     Active Substance: PRAMIPEXOLE
     Indication: PARKINSON^S DISEASE
  2. LEVODOPA/BENSERAZIDE [Suspect]
     Active Substance: BENSERAZIDE\LEVODOPA
     Indication: PARKINSON^S DISEASE
     Dosage: 200+50 MG/DAY
  3. AGOMELATINE [Concomitant]
     Active Substance: AGOMELATINE
     Indication: INSOMNIA
  4. MOCLOBEMIDE [Interacting]
     Active Substance: MOCLOBEMIDE
     Indication: DEPRESSIVE SYMPTOM
     Dosage: PREVIOUS DOSE 150 MG/DAY
  5. RASAGILINE. [Interacting]
     Active Substance: RASAGILINE
     Indication: PARKINSON^S DISEASE
  6. RANOLAZINE. [Suspect]
     Active Substance: RANOLAZINE
     Indication: HYPERTENSION
  7. L?THYROXINE [Suspect]
     Active Substance: LEVOTHYROXINE
     Indication: HYPOTHYROIDISM

REACTIONS (4)
  - Toxicity to various agents [Recovering/Resolving]
  - Autonomic nervous system imbalance [Recovering/Resolving]
  - Drug interaction [Unknown]
  - Serotonin syndrome [Recovering/Resolving]
